FAERS Safety Report 5196691-0 (Version None)
Quarter: 2006Q4

REPORT INFORMATION
  Report Type: 
  Country: None (occurrence: None)
  Receive Date: 20061228
  Receipt Date: 20061228
  Transmission Date: 20070319
  Serious: Yes (Hospitalization)
  Sender: FDA-Public Use
  Company Number: None

PATIENT
  Age: 39 Year
  Sex: Female

DRUGS (1)
  1. FENTANYL TRANSDERMAL SYSTEM [Suspect]
     Indication: SELF-MEDICATION
     Dosage: 50MCG  Q72HRS  TRANSDERMAL
     Route: 062
     Dates: start: 20061214

REACTIONS (6)
  - INCORRECT ROUTE OF DRUG ADMINISTRATION [None]
  - LOSS OF CONSCIOUSNESS [None]
  - MEDICATION ERROR [None]
  - RESPIRATORY RATE DECREASED [None]
  - SELF-MEDICATION [None]
  - VOMITING [None]
